FAERS Safety Report 13784449 (Version 1)
Quarter: 2017Q3

REPORT INFORMATION
  Report Type: Spontaneous
  Country: US (occurrence: US)
  Receive Date: 20170724
  Receipt Date: 20170724
  Transmission Date: 20171127
  Serious: No
  Sender: FDA-Public Use
  Company Number: US-IMPAX LABORATORIES, INC-2017-IPXL-01101

PATIENT
  Age: 89 Year
  Sex: Male
  Weight: 99 kg

DRUGS (3)
  1. RYTARY [Suspect]
     Active Substance: CARBIDOPA\LEVODOPA
     Indication: PARKINSON^S DISEASE
     Dosage: 48.75/195MG,UNK
     Route: 048
  2. RYTARY [Suspect]
     Active Substance: CARBIDOPA\LEVODOPA
     Dosage: 48.75MG/195MG, TWO CAPSULES AT 6 AM, 2 AT 11 AM, AND 1 AT 4PM
     Route: 048
     Dates: start: 20170411
  3. RYTARY [Suspect]
     Active Substance: CARBIDOPA\LEVODOPA
     Dosage: 48.75MG/195MG, TWO CAPSULES AT 6 AM, 2 AT 11 AM, AND 2 AT 4PM
     Route: 048
     Dates: start: 20170401, end: 2017

REACTIONS (3)
  - Insomnia [Unknown]
  - Gait disturbance [Unknown]
  - Hallucination, auditory [Recovered/Resolved]

NARRATIVE: CASE EVENT DATE: 201704
